FAERS Safety Report 5086879-1 (Version None)
Quarter: 2006Q3

REPORT INFORMATION
  Report Type: 
  Country: None (occurrence: None)
  Receive Date: 20060823
  Receipt Date: 20060817
  Transmission Date: 20061208
  Serious: Yes (Disabling, Other)
  Sender: FDA-Public Use
  Company Number: US-MERCK-0608USA04409

PATIENT
  Age: 73 Year
  Sex: Female

DRUGS (12)
  1. COZAAR [Suspect]
     Indication: HYPERTENSION
     Route: 048
     Dates: start: 20050101
  2. COMBIVENT [Concomitant]
     Route: 065
  3. SEREVENT [Concomitant]
     Route: 065
  4. PRILOSEC [Concomitant]
     Route: 065
  5. ZYRTEC [Concomitant]
     Route: 065
  6. ISOSORBIDE [Concomitant]
     Route: 065
  7. DILTIAZEM HYDROCHLORIDE [Concomitant]
     Route: 065
  8. LASIX [Concomitant]
     Route: 065
  9. COUMADIN [Concomitant]
     Route: 065
  10. LIPITOR [Concomitant]
     Route: 065
  11. SYNTHROID [Concomitant]
     Route: 065
  12. AMOXICILLIN [Concomitant]
     Route: 065

REACTIONS (4)
  - COUGH [None]
  - INCREASED UPPER AIRWAY SECRETION [None]
  - STRESS URINARY INCONTINENCE [None]
  - THROAT IRRITATION [None]
